FAERS Safety Report 11078648 (Version 1)
Quarter: 2015Q2

REPORT INFORMATION
  Report Type: Spontaneous
  Country: US (occurrence: US)
  Receive Date: 20150430
  Receipt Date: 20150430
  Transmission Date: 20150821
  Serious: Yes (Hospitalization)
  Sender: FDA-Public Use
  Company Number: US-BIOGENIDEC-2015BI053584

PATIENT
  Sex: Female

DRUGS (24)
  1. AZITHROMYCIN [Concomitant]
     Active Substance: AZITHROMYCIN ANHYDROUS
  2. COUMADIN [Concomitant]
     Active Substance: WARFARIN SODIUM
  3. VITAMIN B12 [Concomitant]
     Active Substance: CYANOCOBALAMIN
  4. CLOTRIMAZOLE. [Concomitant]
     Active Substance: CLOTRIMAZOLE
  5. LEVOTHYROXINE SODIUM. [Concomitant]
     Active Substance: LEVOTHYROXINE SODIUM
  6. NYSTOP [Concomitant]
     Active Substance: NYSTATIN
  7. AVONEX [Suspect]
     Active Substance: INTERFERON BETA-1A
     Indication: MULTIPLE SCLEROSIS
     Route: 030
  8. LORATADINE. [Concomitant]
     Active Substance: LORATADINE
  9. THERAGRAN-M [Concomitant]
     Active Substance: VITAMINS
  10. POTASSIUM CHLORIDE ER [Concomitant]
     Active Substance: POTASSIUM CHLORIDE
  11. BETADINE [Concomitant]
     Active Substance: POVIDONE-IODINE
  12. TOPAMAX [Concomitant]
     Active Substance: TOPIRAMATE
  13. XOPENEX HFA [Concomitant]
     Active Substance: LEVALBUTEROL TARTRATE
  14. ZITHROMAX [Concomitant]
     Active Substance: AZITHROMYCIN DIHYDRATE
  15. MIRALAX [Concomitant]
     Active Substance: POLYETHYLENE GLYCOL 3350
  16. NYSTATIN. [Concomitant]
     Active Substance: NYSTATIN
  17. PROTONIX [Concomitant]
     Active Substance: PANTOPRAZOLE SODIUM
  18. PYRIDIUM [Concomitant]
     Active Substance: PHENAZOPYRIDINE
  19. ENABLEX [Concomitant]
     Active Substance: DARIFENACIN\DARIFENACIN HYDROBROMIDE
  20. PROVIGIL [Concomitant]
     Active Substance: MODAFINIL
  21. VITAMIN D3 [Concomitant]
     Active Substance: CHOLECALCIFEROL
  22. BACLOFEN. [Concomitant]
     Active Substance: BACLOFEN
  23. DEXAMETHASONE SODIUM PHOSPHATE. [Concomitant]
     Active Substance: DEXAMETHASONE SODIUM PHOSPHATE
  24. NORTRIPTYLINE HC [Concomitant]

REACTIONS (4)
  - Cellulitis [Unknown]
  - Seizure [Unknown]
  - Loss of consciousness [Unknown]
  - Fall [Recovered/Resolved]
